FAERS Safety Report 20352451 (Version 1)
Quarter: 2022Q1

REPORT INFORMATION
  Report Type: Spontaneous
  Country: US (occurrence: US)
  Receive Date: 20220119
  Receipt Date: 20220119
  Transmission Date: 20220423
  Serious: Yes (Other)
  Sender: FDA-Public Use
  Company Number: US-PFIZER INC-202200037658

PATIENT
  Age: 55 Year
  Sex: Female

DRUGS (1)
  1. IBRANCE [Suspect]
     Active Substance: PALBOCICLIB
     Dosage: UNK
     Dates: start: 202002

REACTIONS (5)
  - Pneumonia [Unknown]
  - Herpes zoster [Unknown]
  - Cystitis [Unknown]
  - Oxygen saturation decreased [Unknown]
  - Full blood count decreased [Unknown]
